FAERS Safety Report 8859096 (Version 1)
Quarter: 2012Q4

REPORT INFORMATION
  Report Type: Spontaneous
  Country: US (occurrence: None)
  Receive Date: 20121024
  Receipt Date: 20121024
  Transmission Date: 20130627
  Serious: Yes (Other)
  Sender: FDA-Public Use
  Company Number: None

PATIENT
  Age: 74 Year
  Sex: Male
  Weight: 82.56 kg

DRUGS (2)
  1. CYMBALTA [Suspect]
     Indication: POLYMYALGIA RHEUMATICA
     Dates: start: 20120316, end: 20121018
  2. CYMBALTA [Suspect]
     Indication: DEPRESSION
     Dates: start: 20120316, end: 20121018

REACTIONS (3)
  - Drug withdrawal syndrome [None]
  - Paraesthesia [None]
  - Gait disturbance [None]
